FAERS Safety Report 5490660-9 (Version None)
Quarter: 2007Q4

REPORT INFORMATION
  Report Type: 
  Country: None (occurrence: None)
  Receive Date: 20071019
  Receipt Date: 20071012
  Transmission Date: 20080405
  Serious: Yes (Other)
  Sender: FDA-Public Use
  Company Number: CA-ASTRAZENECA-2007UW23865

PATIENT
  Age: 45 Year
  Sex: Male

DRUGS (4)
  1. SEROQUEL [Suspect]
     Route: 048
  2. BUDESONIDE [Concomitant]
  3. DOMPERIDONE [Concomitant]
     Route: 048
  4. RABEPRAZOLE SODIUM [Concomitant]
     Route: 048

REACTIONS (4)
  - HYPERGLYCAEMIA [None]
  - HYPEROSMOLAR STATE [None]
  - KETOACIDOSIS [None]
  - RENAL FAILURE ACUTE [None]
